FAERS Safety Report 5587836-9 (Version None)
Quarter: 2007Q4

REPORT INFORMATION
  Report Type: 
  Country: None (occurrence: None)
  Receive Date: 20071211
  Receipt Date: 20071029
  Transmission Date: 20080405
  Serious: No
  Sender: FDA-Public Use
  Company Number: 002#2#2007-00157

PATIENT
  Age: 76 Year
  Sex: Male
  Weight: 91.173 kg

DRUGS (16)
  1. NEUPRO [Suspect]
     Indication: PARKINSON'S DISEASE
     Dosage: 2MG/24H,1 IN 1 D,TRANSDERMAL ; 6MG/24H,1 IN 1 D,TRANSDERMAL
     Route: 062
     Dates: start: 20070801
  2. NEUPRO [Suspect]
     Indication: PARKINSON'S DISEASE
     Dosage: 2MG/24H,1 IN 1 D,TRANSDERMAL ; 6MG/24H,1 IN 1 D,TRANSDERMAL
     Route: 062
     Dates: start: 20070801
  3. ACIPEX [Concomitant]
  4. COZAAR [Concomitant]
  5. DIGOXIN [Concomitant]
  6. FOSAMAX [Concomitant]
  7. HUMULIN R [Concomitant]
  8. KLOR-CON [Concomitant]
  9. RANITIDINE [Concomitant]
  10. WARFARIN SODIUM [Concomitant]
  11. ZOCOR [Concomitant]
  12. IRON PILLS [Concomitant]
  13. VITAMIN CAP [Concomitant]
  14. VITAMIN E [Concomitant]
  15. TYLENOL [Concomitant]
  16. BUMETANIDE [Concomitant]

REACTIONS (2)
  - ANXIETY [None]
  - INSOMNIA [None]
